FAERS Safety Report 5934624-7 (Version None)
Quarter: 2008Q4

REPORT INFORMATION
  Report Type: 
  Country: None (occurrence: None)
  Receive Date: 20081029
  Receipt Date: 20081024
  Transmission Date: 20090506
  Serious: Yes (Other)
  Sender: FDA-Public Use
  Company Number: JP-ABBOTT-08P-087-0482251-00

PATIENT
  Age: 37 Year
  Sex: Male
  Weight: 61 kg

DRUGS (7)
  1. SEVOFLURANE [Suspect]
     Indication: MAINTENANCE OF ANAESTHESIA
     Route: 055
  2. PROPOFOL [Suspect]
     Indication: INDUCTION OF ANAESTHESIA
     Route: 042
  3. ROCURONIUM BROMIDE [Suspect]
     Indication: MUSCLE RELAXANT THERAPY
     Dosage: UNKNOWN
  4. FENTANYL CITRATE [Concomitant]
     Indication: INDUCTION OF ANAESTHESIA
     Dosage: UNKNOWN
  5. ATROPINE SULFATE [Concomitant]
     Indication: INDUCTION OF ANAESTHESIA
     Dosage: UNKNOWN
  6. NITROUS OXIDE [Concomitant]
     Indication: GENERAL ANAESTHESIA
     Route: 055
  7. OXYGEN [Concomitant]
     Indication: MAINTENANCE OF ANAESTHESIA
     Route: 055

REACTIONS (1)
  - RHABDOMYOLYSIS [None]
